FAERS Safety Report 6132442-0 (Version None)
Quarter: 2009Q1

REPORT INFORMATION
  Report Type: 
  Country: None (occurrence: None)
  Receive Date: 20090325
  Receipt Date: 20090316
  Transmission Date: 20090719
  Serious: Yes (Hospitalization)
  Sender: FDA-Public Use
  Company Number: US-B.I. PHARMACEUTICALS,INC./RIDGEFIELD-2007-BP-01896BP

PATIENT
  Sex: Male
  Weight: 116 kg

DRUGS (14)
  1. MIRAPEX [Suspect]
     Indication: PARKINSON'S DISEASE
     Dates: start: 20000929, end: 20051001
  2. REQUIP [Suspect]
     Indication: PARKINSON'S DISEASE
     Dosage: 3MG
     Dates: start: 20000801, end: 20051017
  3. SINEMET [Concomitant]
  4. STALEVO 100 [Concomitant]
     Dosage: 300MG
  5. AMANTADINE HCL [Concomitant]
     Dosage: 200MG
  6. CLONAZEPAM [Concomitant]
     Dosage: .5MG
  7. SEROQUEL [Concomitant]
     Indication: HALLUCINATION
     Dosage: 25MG
  8. LIPITOR [Concomitant]
     Indication: HYPERCHOLESTEROLAEMIA
  9. COZYME [Concomitant]
  10. BENADRYL [Concomitant]
  11. ATIVAN [Concomitant]
  12. TRIAMTERENE [Concomitant]
     Indication: HYPERTENSION
  13. HYDROCHLOROTHIAZIDE [Concomitant]
     Indication: HYPERTENSION
  14. PRILOSEC [Concomitant]

REACTIONS (8)
  - CONFUSIONAL STATE [None]
  - DELIRIUM [None]
  - DEPRESSION [None]
  - ECONOMIC PROBLEM [None]
  - EMOTIONAL DISTRESS [None]
  - HALLUCINATION [None]
  - OBSESSIVE-COMPULSIVE DISORDER [None]
  - PATHOLOGICAL GAMBLING [None]
